FAERS Safety Report 6813412-3 (Version None)
Quarter: 2010Q2

REPORT INFORMATION
  Report Type: 
  Country: None (occurrence: None)
  Receive Date: 20100628
  Receipt Date: 20100617
  Transmission Date: 20101027
  Serious: Yes (Other)
  Sender: FDA-Public Use
  Company Number: 608499

PATIENT
  Age: 84 Year
  Sex: Female
  Weight: 54.43 kg

DRUGS (1)
  1. EPINEPHRINE [Suspect]
     Indication: CATARACT OPERATION
     Dates: start: 20100405

REACTIONS (6)
  - DEMENTIA [None]
  - EPISCLERITIS [None]
  - FOREIGN BODY IN EYE [None]
  - INFLAMMATION [None]
  - SCLERITIS [None]
  - STAPHYLOCOCCAL INFECTION [None]
